FAERS Safety Report 8429360-1 (Version None)
Quarter: 2012Q2

REPORT INFORMATION
  Report Type: 
  Country: None (occurrence: None)
  Receive Date: 20120612
  Receipt Date: 20120601
  Transmission Date: 20120825
  Serious: Yes (Hospitalization, Other)
  Sender: FDA-Public Use
  Company Number: US-SANOFI-AVENTIS-2011SA048280

PATIENT
  Age: 63 Year
  Sex: Male

DRUGS (76)
  1. LIPITOR [Concomitant]
  2. METFORMIN HCL [Concomitant]
  3. VIAGRA [Concomitant]
  4. MEGACE [Concomitant]
  5. MULTI-VITAMINS [Concomitant]
  6. PIPERACILLIN/TAZOBACTAM [Concomitant]
  7. MAGNESIUM [Concomitant]
  8. BISACODYL [Concomitant]
  9. RANITIDINE [Concomitant]
  10. PLAVIX [Suspect]
     Route: 048
     Dates: start: 20070504, end: 20100701
  11. POTASSIUM CHLORIDE [Concomitant]
  12. LEXAPRO [Concomitant]
  13. TAMIFLU [Concomitant]
  14. TERBINAFINE HCL [Concomitant]
  15. PANTOPRAZOLE [Concomitant]
  16. HYDROCODONE BITARTRATE + ACETAMINOPHEN [Concomitant]
  17. HEPARIN [Concomitant]
  18. METOPROLOL TARTRATE [Concomitant]
  19. DARVOCET-N 50 [Concomitant]
  20. ALL OTHER THERAPEUTIC PRODUCTS [Concomitant]
  21. LIDOCAINE [Concomitant]
  22. LABETALOL HYDROCHLORIDE [Concomitant]
  23. CALCIUM GLUCONATE [Concomitant]
  24. CEFTRIAXONE [Concomitant]
  25. EPHEDRINE [Concomitant]
  26. HYDROCHLOROTHIAZIDE [Concomitant]
  27. FEXOFENADINE [Concomitant]
  28. ASPIRIN [Concomitant]
  29. FENTANYL-100 [Concomitant]
  30. CISATRACURIUM BESYLATE [Concomitant]
  31. ALL OTHER THERAPEUTIC PRODUCTS [Concomitant]
  32. ATROPINE [Concomitant]
  33. AZITHROMYCIN [Concomitant]
  34. ENOXAPARIN [Concomitant]
  35. MIDAZOLAM [Concomitant]
  36. TAMSULOSIN HCL [Concomitant]
  37. SUCCINYLCHOLINE CHLORIDE [Concomitant]
  38. GLYCOPYRROLATE [Concomitant]
  39. ROCURONIUM BROMIDE [Concomitant]
  40. GLIPIZIDE [Concomitant]
  41. LISINOPRIL [Concomitant]
  42. AMOXICILLIN [Concomitant]
  43. PROMETHAZINE [Concomitant]
  44. ONDANSETRON [Concomitant]
  45. MEPERIDINE HCL [Concomitant]
  46. DIPHENHYDRAMINE HCL [Concomitant]
  47. SODIUM CHLORIDE [Concomitant]
  48. METHYLPREDNISOLONE [Concomitant]
  49. LORAZEPAM [Concomitant]
  50. DIPHENOXYLATE HCL AND ATROPINE SULFATE [Concomitant]
  51. ECONAZOLE NITRATE [Concomitant]
  52. CIPROFLOXACIN [Concomitant]
  53. FUROSEMIDE [Concomitant]
  54. HYDROMORPHONE HCL [Concomitant]
  55. FUROSEMIDE [Concomitant]
  56. GLIPIZIDE [Concomitant]
  57. ZYRTEC [Concomitant]
  58. HUMULIN R [Concomitant]
  59. MEROPENEM [Concomitant]
  60. ERTAPENEM [Concomitant]
  61. MORPHINE [Concomitant]
  62. GLYCOPYRROLATE [Concomitant]
  63. NEOSTIGMINE [Concomitant]
  64. PROPOFOL [Concomitant]
  65. ROCURONIUM BROMIDE [Concomitant]
  66. NIFEDIPINE [Concomitant]
  67. NEXIUM [Concomitant]
  68. ATORVASTATIN CALCIUM [Concomitant]
  69. ENALAPRIL MALEATE [Concomitant]
  70. BUPIVACAINE HCL [Concomitant]
  71. EPHEDRIN [Concomitant]
  72. PHENYLEPHRINE HYDROCHLORIDE [Concomitant]
  73. METOCLOPRAMIDE [Concomitant]
  74. BUPIVACAINE HCL [Concomitant]
  75. DESFLURANE [Concomitant]
  76. LACTATED RINGER'S [Concomitant]

REACTIONS (11)
  - HEPATIC STEATOSIS [None]
  - RENAL CYST [None]
  - ENTEROCUTANEOUS FISTULA [None]
  - ABDOMINAL PAIN UPPER [None]
  - ABDOMINAL ABSCESS [None]
  - GENERAL PHYSICAL HEALTH DETERIORATION [None]
  - PLEURAL EFFUSION [None]
  - GASTROINTESTINAL HAEMORRHAGE [None]
  - ADRENAL MASS [None]
  - PANCREATIC PSEUDOCYST [None]
  - NEPHROLITHIASIS [None]
